FAERS Safety Report 14512784 (Version 2)
Quarter: 2018Q1

REPORT INFORMATION
  Report Type: Spontaneous
  Country: US (occurrence: US)
  Receive Date: 20180209
  Receipt Date: 20180329
  Transmission Date: 20180509
  Serious: No
  Sender: FDA-Public Use
  Company Number: US-GREER LABORATORIES, INC.-2041711

PATIENT
  Age: 76 Year
  Sex: Female

DRUGS (15)
  1. STANDARDIZED MITE, DERMATOPHAGOIDES FARINAE [Concomitant]
     Active Substance: DERMATOPHAGOIDES FARINAE
     Route: 058
  2. POLLENS - TREES, ASH, WHITE FRAXINUS AMERICANA [Concomitant]
     Active Substance: FRAXINUS AMERICANA POLLEN
     Route: 058
  3. POLLENS - WEEDS AND GARDEN PLANTS, LAMBS QUARTERS CHENOPODIUM ALBUM [Concomitant]
     Active Substance: CHENOPODIUM ALBUM POLLEN
     Route: 058
  4. POLLENS - GRASSES, GS K-O-R-T + SWEET VERNAL MIX [Concomitant]
     Route: 058
  5. MOLDS, RUSTS AND SMUTS, GS ASPERGILLUS MIX [Concomitant]
     Active Substance: ASPERGILLUS FLAVUS\ASPERGILLUS FUMIGATUS\ASPERGILLUS NIGER VAR. NIGER\ASPERGILLUS NIDULANS\EUROTIUM AMSTELODAMI
     Route: 058
  6. POLLENS - WEEDS AND GARDEN PLANTS, PIGWEED, ROUGH REDROOT AMARANTHUS RETROFLEXUS [Concomitant]
     Active Substance: AMARANTHUS RETROFLEXUS POLLEN
     Route: 058
  7. POLLENS - TREES, BIRCH, BLACK/SWEET, BETULA LENTA [Suspect]
     Active Substance: BETULA LENTA POLLEN
     Indication: RHINITIS ALLERGIC
     Route: 058
  8. POLLENS - WEEDS AND GARDEN PLANTS, LAMBS QUARTERS CHENOPODIUM ALBUM [Concomitant]
     Active Substance: CHENOPODIUM ALBUM POLLEN
     Route: 058
  9. TRIAMCINOLONE ACETONIDE. [Concomitant]
     Active Substance: TRIAMCINOLONE ACETONIDE
     Route: 061
  10. STANDARDIZED MITE, DERMATOPHAGOIDES PTERONYSSINUS [Concomitant]
     Active Substance: DERMATOPHAGOIDES PTERONYSSINUS
     Route: 058
  11. CLARITIN [Concomitant]
     Active Substance: LORATADINE
     Route: 058
  12. POLLENS - TREES, GS EASTERN OAK MIX [Concomitant]
     Active Substance: QUERCUS ALBA POLLEN\QUERCUS RUBRA POLLEN\QUERCUS VELUTINA POLLEN
     Route: 058
  13. POLLENS - WEEDS AND GARDEN PLANTS, PLANTAIN, ENGLISH PLANTAGO LANCEOLATA [Concomitant]
     Active Substance: PLANTAGO LANCEOLATA POLLEN
     Route: 058
  14. POLLENS - TREES, HICKORY, SHAGBARK CARYA OVATA [Concomitant]
     Active Substance: CARYA OVATA POLLEN
     Route: 058
  15. SINGULAIR [Concomitant]
     Active Substance: MONTELUKAST SODIUM
     Route: 058

REACTIONS (1)
  - Hypersensitivity [Recovered/Resolved]

NARRATIVE: CASE EVENT DATE: 20180122
